FAERS Safety Report 7388787-X (Version None)
Quarter: 2011Q2

REPORT INFORMATION
  Report Type: 
  Country: None (occurrence: None)
  Receive Date: 20110401
  Receipt Date: 20110321
  Transmission Date: 20111010
  Serious: Yes (Death, Life-Threatening, Hospitalization, Other)
  Sender: FDA-Public Use
  Company Number: TR-CELGENEUS-161-C5013-08111010

PATIENT
  Sex: Female
  Weight: 82 kg

DRUGS (22)
  1. BACTRIM [Concomitant]
     Dosage: 400/80 MG
     Route: 058
  2. RANIVER [Concomitant]
     Dosage: 50 MG/2 ML
     Route: 065
  3. S-ISOTONIC [Concomitant]
     Dosage: 1000 MILLILITER
     Route: 065
  4. PREDNISONE [Suspect]
     Indication: MULTIPLE MYELOMA
     Dosage: 164 MILLIGRAM
     Route: 065
     Dates: start: 20080718, end: 20081117
  5. THEOSOL [Concomitant]
     Dosage: 200/100 ML PVC WITHOUT SET
     Route: 065
  6. DEXTROSE [Concomitant]
     Dosage: 500 MILLILITER
     Route: 065
  7. PANTPAS-IV [Concomitant]
     Dosage: 40 MILLIGRAM
     Route: 065
  8. ADDAMEL [Concomitant]
     Dosage: 20 OTHER
     Route: 065
  9. DEXTROSE [Concomitant]
     Route: 065
  10. ENOXAPARIN [Concomitant]
     Indication: ANTICOAGULANT THERAPY
     Dosage: .4 MILLILITER
     Route: 058
  11. LENALIDOMIDE [Suspect]
     Indication: MULTIPLE MYELOMA
     Dosage: 10 MILLIGRAM
     Route: 048
     Dates: start: 20080718, end: 20081118
  12. MELPHALAN [Suspect]
     Indication: MULTIPLE MYELOMA
     Dosage: 14 MILLIGRAM
     Route: 065
     Dates: start: 20080718, end: 20081117
  13. DIGOXIN [Concomitant]
     Dosage: 10 OTHER
  14. MAGNESIUM HYDROXIDE [Concomitant]
     Dosage: 100 GRAM
     Route: 065
  15. UREVER [Concomitant]
     Dosage: 2ML/100 AMP
     Route: 065
  16. S-CLINOLEIC [Concomitant]
     Dosage: 500 MILLILITER
     Route: 065
  17. S-ISOTONIC [Concomitant]
     Dosage: 500 MILLILITER
     Route: 065
  18. CERNEVIT MULTIVITAMIN [Concomitant]
     Dosage: 10 OTHER
     Route: 065
  19. DEXTROSE [Concomitant]
     Dosage: 500 MILLILITER
     Route: 065
  20. OMEGAVEN [Concomitant]
     Dosage: 100 MILLILITER
     Route: 062
  21. KLOROBEN [Concomitant]
     Dosage: 200 MILLILITER
     Route: 048
  22. S-ISOTONIC [Concomitant]
     Dosage: 100 MILLILITER
     Route: 065

REACTIONS (3)
  - RIGHT VENTRICULAR FAILURE [None]
  - LEUKAEMIA PLASMACYTIC [None]
  - PULMONARY EMBOLISM [None]
